FAERS Safety Report 17972217 (Version 1)
Quarter: 2020Q3

REPORT INFORMATION
  Report Type: Spontaneous
  Country: US (occurrence: US)
  Receive Date: 20200702
  Receipt Date: 20200702
  Transmission Date: 20201103
  Serious: No
  Sender: FDA-Public Use
  Company Number: US-GLAXOSMITHKLINE-US2020AMR107618

PATIENT
  Sex: Female

DRUGS (1)
  1. FLUTICASONE PROPIONATE+SALMETEROL XINAFOATE [Suspect]
     Active Substance: FLUTICASONE PROPIONATE\SALMETEROL XINAFOATE
     Indication: PRODUCT USED FOR UNKNOWN INDICATION
     Dosage: UNK (250/50 MCG)
     Route: 065
     Dates: start: 20200615, end: 20200622

REACTIONS (5)
  - Product dose omission issue [Unknown]
  - Speech disorder [Unknown]
  - Wheezing [Unknown]
  - Dyspnoea [Unknown]
  - Wrong technique in device usage process [Unknown]
